FAERS Safety Report 7507101-X (Version None)
Quarter: 2011Q2

REPORT INFORMATION
  Report Type: 
  Country: None (occurrence: None)
  Receive Date: 20110526
  Receipt Date: 20110524
  Transmission Date: 20111010
  Serious: Yes (Hospitalization)
  Sender: FDA-Public Use
  Company Number: US-ABBOTT-11P-163-0728473-00

PATIENT
  Sex: Male
  Weight: 58.112 kg

DRUGS (1)
  1. HUMIRA [Suspect]
     Indication: CROHN'S DISEASE
     Dates: end: 20110101

REACTIONS (2)
  - DEHYDRATION [None]
  - WHITE BLOOD CELL COUNT INCREASED [None]
